FAERS Safety Report 20638018 (Version 1)
Quarter: 2022Q1

REPORT INFORMATION
  Report Type: Spontaneous
  Country: FR (occurrence: FR)
  Receive Date: 20220325
  Receipt Date: 20220325
  Transmission Date: 20220423
  Serious: Yes (Hospitalization)
  Sender: FDA-Public Use
  Company Number: None

PATIENT
  Age: 39 Year
  Sex: Female

DRUGS (4)
  1. AMOXICILLIN [Suspect]
     Active Substance: AMOXICILLIN
     Indication: Tonsillitis
     Dosage: 3 GRAM DAILY; 1G X3/D
     Route: 048
     Dates: start: 20211108, end: 20211113
  2. TEGRETOL [Suspect]
     Active Substance: CARBAMAZEPINE
     Indication: Trigeminal neuralgia
     Dosage: 2 DOSAGE FORMS DAILY; 1 CPR X2 /D , TEGRETOL L.P. 200 MG, FILM-COATED TABLET WITH PROLONGED RELEASE
     Route: 048
     Dates: start: 202110, end: 20211126
  3. TEGRETOL [Suspect]
     Active Substance: CARBAMAZEPINE
     Dosage: TEGRETOL 200 MG, SCORED TABLET; 0.5 X2/D
     Route: 048
     Dates: start: 202110, end: 20211126
  4. DEXTROMETHORPHANE (BROMHYDRATE) [Concomitant]
     Indication: Tonsillitis
     Route: 048
     Dates: start: 202111

REACTIONS (1)
  - Drug reaction with eosinophilia and systemic symptoms [Recovering/Resolving]

NARRATIVE: CASE EVENT DATE: 20211114
